FAERS Safety Report 6765703-2 (Version None)
Quarter: 2010Q2

REPORT INFORMATION
  Report Type: 
  Country: None (occurrence: None)
  Receive Date: 20100611
  Receipt Date: 20100601
  Transmission Date: 20101027
  Serious: Yes (Hospitalization, Other)
  Sender: FDA-Public Use
  Company Number: US-NAPPMUNDI-USA-2010-0044297

PATIENT
  Age: 46 Year
  Sex: Male

DRUGS (4)
  1. OXYCODONE HCL [Suspect]
     Indication: BACK PAIN
     Dosage: 10 MG, UNK
  2. OXYCONTIN [Suspect]
     Indication: BACK PAIN
     Dosage: 80 MG, UNK
  3. VALIUM [Concomitant]
     Dosage: 2 TABLET, SEE TEXT
  4. SOMA [Concomitant]
     Dosage: 325 MG, SEE TEXT

REACTIONS (2)
  - LEUKOENCEPHALOPATHY [None]
  - OVERDOSE [None]
